FAERS Safety Report 7815281-1 (Version None)
Quarter: 2011Q4

REPORT INFORMATION
  Report Type: 
  Country: None (occurrence: None)
  Receive Date: 20111014
  Receipt Date: 20111003
  Transmission Date: 20120403
  Serious: Yes (Other)
  Sender: FDA-Public Use
  Company Number: US-ACTELION-A-US2011-54969

PATIENT

DRUGS (1)
  1. TRACLEER [Suspect]
     Indication: PULMONARY ARTERIAL HYPERTENSION
     Dosage: UNK
     Route: 048
     Dates: start: 20030725

REACTIONS (12)
  - HYPOACUSIS [None]
  - BACK PAIN [None]
  - GAIT DISTURBANCE [None]
  - INFLUENZA LIKE ILLNESS [None]
  - EPISTAXIS [None]
  - HEADACHE [None]
  - BARRETT'S OESOPHAGUS [None]
  - VIRAL INFECTION [None]
  - PRECANCEROUS CELLS PRESENT [None]
  - BLOOD URINE PRESENT [None]
  - PYREXIA [None]
  - OROPHARYNGEAL PAIN [None]
